FAERS Safety Report 9596479 (Version 1)
Quarter: 2013Q4

REPORT INFORMATION
  Report Type: Spontaneous
  Country: US (occurrence: US)
  Receive Date: 20131004
  Receipt Date: 20131004
  Transmission Date: 20140711
  Serious: No
  Sender: FDA-Public Use
  Company Number: US-BAYER-2013-120388

PATIENT
  Age: 62 Year
  Sex: Female
  Weight: 77.1 kg

DRUGS (12)
  1. BETASERON [Suspect]
     Indication: MULTIPLE SCLEROSIS
     Dosage: UNK UNK, UNK
     Route: 058
     Dates: start: 201108, end: 201308
  2. CRESTOR [Concomitant]
  3. MAGNESIUM [MAGNESIUM] [Concomitant]
  4. PRILOSEC [Concomitant]
  5. VITAMIN B12 [CYANOCOBALAMIN] [Concomitant]
  6. HYDROCHLOROTHIAZIDE [Concomitant]
  7. VITAMIN D3 [Concomitant]
  8. METAMUCIL [PSYLLIUM HYDROPHILIC MUCILLOID] [Concomitant]
  9. IRON [IRON] [Concomitant]
  10. VITAMIN E [TOCOPHEROL] [Concomitant]
  11. CO Q-10 [Concomitant]
  12. AMLODIPINE [Concomitant]

REACTIONS (2)
  - Injection site erythema [Not Recovered/Not Resolved]
  - Injection site pain [Not Recovered/Not Resolved]
